FAERS Safety Report 5491205-X (Version None)
Quarter: 2007Q4

REPORT INFORMATION
  Report Type: 
  Country: None (occurrence: None)
  Receive Date: 20071019
  Receipt Date: 20071008
  Transmission Date: 20080405
  Serious: Yes (Hospitalization)
  Sender: FDA-Public Use
  Company Number: FR-PFIZER INC-2007086320

PATIENT
  Age: 19 Year
  Sex: Female

DRUGS (1)
  1. ATARAX [Suspect]
     Dosage: DAILY DOSE:525MG
     Route: 048
     Dates: start: 20071008, end: 20071008

REACTIONS (2)
  - INTENTIONAL OVERDOSE [None]
  - SUICIDE ATTEMPT [None]
